FAERS Safety Report 21265216 (Version 1)
Quarter: 2022Q3

REPORT INFORMATION
  Report Type: Report from Study
  Country: DE (occurrence: DE)
  Receive Date: 20220829
  Receipt Date: 20220829
  Transmission Date: 20221026
  Serious: Yes (Hospitalization)
  Sender: FDA-Public Use
  Company Number: DE-NOVARTISPH-NVSC2022DE193157

PATIENT
  Sex: Male

DRUGS (12)
  1. METHOTREXATE [Suspect]
     Active Substance: METHOTREXATE
     Indication: Rheumatoid arthritis
     Dosage: 25 MILLIGRAM
     Route: 065
     Dates: start: 20141007
  2. METHOTREXATE [Suspect]
     Active Substance: METHOTREXATE
     Dosage: 7.5  MILLIGRAM
     Route: 065
     Dates: start: 20150130
  3. METHOTREXATE [Suspect]
     Active Substance: METHOTREXATE
     Dosage: 17.5  MILLIGRAM
     Route: 065
     Dates: start: 20150507
  4. METHOTREXATE [Suspect]
     Active Substance: METHOTREXATE
     Dosage: 17.5  MILLIGRAM
     Route: 065
     Dates: start: 20151109
  5. METHOTREXATE [Suspect]
     Active Substance: METHOTREXATE
     Dosage: 17.5  MILLIGRAM
     Route: 065
     Dates: start: 20160428
  6. METHOTREXATE [Suspect]
     Active Substance: METHOTREXATE
     Dosage: 17.5  MILLIGRAM
     Route: 065
     Dates: start: 20161011
  7. METHOTREXATE [Suspect]
     Active Substance: METHOTREXATE
     Dosage: 17.5 MILLIGRAM
     Route: 065
     Dates: start: 20171005
  8. METHOTREXATE [Suspect]
     Active Substance: METHOTREXATE
     Dosage: 17.5  MILLIGRAM
     Route: 065
     Dates: start: 20180423
  9. METHOTREXATE [Suspect]
     Active Substance: METHOTREXATE
     Dosage: 17.5  MILLIGRAM
     Route: 065
     Dates: start: 20181121
  10. UNSPECIFIED INGREDIENT [Suspect]
     Active Substance: UNSPECIFIED INGREDIENT
     Indication: Product used for unknown indication
     Dosage: UNK
     Route: 065
  11. ENBREL [Suspect]
     Active Substance: ETANERCEPT
     Indication: Rheumatoid arthritis
     Dosage: 50 MILLIGRAM
     Route: 065
     Dates: start: 201410, end: 201801
  12. ORENCIA [Suspect]
     Active Substance: ABATACEPT
     Indication: Rheumatoid arthritis
     Dosage: 125 MILLIGRAM
     Route: 065
     Dates: start: 201807, end: 201808

REACTIONS (1)
  - Ileus [Unknown]

NARRATIVE: CASE EVENT DATE: 20190224
